FAERS Safety Report 11117867 (Version 1)
Quarter: 2015Q2

REPORT INFORMATION
  Report Type: Spontaneous
  Country: PL (occurrence: PL)
  Receive Date: 20150518
  Receipt Date: 20150518
  Transmission Date: 20150821
  Serious: Yes (Other)
  Sender: FDA-Public Use
  Company Number: PL-AMGEN-POLSP2015047661

PATIENT
  Age: 50 Year
  Sex: Female
  Weight: 62 kg

DRUGS (3)
  1. METYPRED                           /00049601/ [Concomitant]
     Active Substance: METHYLPREDNISOLONE
     Dosage: 6 UNK, DAILY
     Dates: start: 2012
  2. LEFLUNOMID [Concomitant]
     Active Substance: LEFLUNOMIDE
     Dosage: UNK
     Dates: start: 2013
  3. ENBREL [Suspect]
     Active Substance: ETANERCEPT
     Indication: PRODUCT USED FOR UNKNOWN INDICATION
     Dosage: 50 MG, 1X WEEK
     Route: 058
     Dates: start: 20130521, end: 20131029

REACTIONS (3)
  - Urinary tract infection [Recovered/Resolved]
  - Klebsiella test positive [Unknown]
  - Ureaplasma test positive [Unknown]

NARRATIVE: CASE EVENT DATE: 201308
